FAERS Safety Report 22256113 (Version 5)
Quarter: 2025Q4

REPORT INFORMATION
  Report Type: Report from Study
  Country: US (occurrence: US)
  Receive Date: 20230426
  Receipt Date: 20251119
  Transmission Date: 20260117
  Serious: Yes (Other)
  Sender: ABBVIE
  Company Number: US-ABBVIE-22K-163-4424802-00

PATIENT
  Age: 40 Year
  Sex: Male
  Weight: 134.71 kg

DRUGS (5)
  1. HUMIRA [Suspect]
     Active Substance: ADALIMUMAB
     Indication: Hidradenitis
     Dosage: FORM STRENGTH: 40 MILLIGRAM
     Route: 058
     Dates: start: 20211020
  2. HUMIRA [Suspect]
     Active Substance: ADALIMUMAB
     Indication: Ankylosing spondylitis
     Dosage: CITRATE FREE, STRENGTH 40 MG,?FIRST ADMIN DATE WAS 2023
     Route: 058
  3. HUMIRA [Suspect]
     Active Substance: ADALIMUMAB
     Dosage: FORM STRENGTH: 40 MG?LAST ADMIN DATE WAS 2023
     Route: 058
     Dates: start: 20230320
  4. HUMIRA [Suspect]
     Active Substance: ADALIMUMAB
     Route: 058
     Dates: start: 20211020
  5. COSENTYX [Suspect]
     Active Substance: SECUKINUMAB
     Indication: Product used for unknown indication
     Route: 065

REACTIONS (13)
  - Abscess limb [Unknown]
  - Subcutaneous abscess [Recovered/Resolved]
  - Therapeutic product effect decreased [Unknown]
  - Photosensitivity reaction [Not Recovered/Not Resolved]
  - Abdominal abscess [Recovered/Resolved]
  - Therapeutic product effect incomplete [Recovered/Resolved]
  - Nausea [Unknown]
  - White blood cell count increased [Unknown]
  - Sunburn [Not Recovered/Not Resolved]
  - Infection [Unknown]
  - Groin abscess [Unknown]
  - Adverse drug reaction [Unknown]
  - Hidradenitis [Recovering/Resolving]

NARRATIVE: CASE EVENT DATE: 20230101
